FAERS Safety Report 25616299 (Version 1)
Quarter: 2025Q3

REPORT INFORMATION
  Report Type: Spontaneous
  Country: EG (occurrence: EG)
  Receive Date: 20250729
  Receipt Date: 20250729
  Transmission Date: 20251020
  Serious: Yes (Death)
  Sender: RANBAXY
  Company Number: EG-SUN PHARMACEUTICAL INDUSTRIES LTD-2025RR-519129

PATIENT
  Age: 11 Year
  Sex: Female

DRUGS (2)
  1. CIPROFLOXACIN [Suspect]
     Active Substance: CIPROFLOXACIN
     Indication: Antibiotic prophylaxis
     Route: 065
  2. DIFLUCAN [Suspect]
     Active Substance: FLUCONAZOLE
     Indication: Antifungal treatment
     Route: 065

REACTIONS (1)
  - Disease recurrence [Fatal]
